FAERS Safety Report 4835163-7 (Version None)
Quarter: 2005Q4

REPORT INFORMATION
  Report Type: 
  Country: None (occurrence: None)
  Receive Date: 20051114
  Receipt Date: 20051107
  Transmission Date: 20060501
  Serious: Yes (Hospitalization)
  Sender: FDA-Public Use
  Company Number: CIP05002586

PATIENT
  Age: 77 Year
  Sex: Male

DRUGS (8)
  1. ASACOL [Suspect]
     Indication: COLITIS ULCERATIVE
     Dosage: 1200 MG THREE DAILY, ORAL
     Route: 048
     Dates: start: 20051103
  2. PREDNISONE [Concomitant]
  3. LANOXIN [Concomitant]
  4. LEXAPRO [Concomitant]
  5. CARDIZEM [Concomitant]
  6. PLAVIX [Concomitant]
  7. LOMOTIL [Concomitant]
  8. SINGULAIR [Concomitant]

REACTIONS (4)
  - CARDIAC FAILURE CONGESTIVE [None]
  - DIARRHOEA [None]
  - ELECTROLYTE IMBALANCE [None]
  - HYPERSENSITIVITY [None]
